FAERS Safety Report 19799183 (Version 2)
Quarter: 2022Q2

REPORT INFORMATION
  Report Type: Spontaneous
  Country: US (occurrence: US)
  Receive Date: 20210907
  Receipt Date: 20220506
  Transmission Date: 20220721
  Serious: No
  Sender: FDA-Public Use
  Company Number: US-PFIZER INC-2020088323

PATIENT
  Age: 75 Year
  Sex: Female
  Weight: 58.957 kg

DRUGS (3)
  1. XELJANZ XR [Suspect]
     Active Substance: TOFACITINIB CITRATE
     Indication: Rheumatoid arthritis
     Dosage: 11 MG, 1X/DAY
     Route: 048
  2. NABUMETONE [Concomitant]
     Active Substance: NABUMETONE
     Dosage: UNK
  3. PREDNISONE [Concomitant]
     Active Substance: PREDNISONE

REACTIONS (4)
  - Condition aggravated [Unknown]
  - Gait disturbance [Unknown]
  - Limb discomfort [Unknown]
  - Arthritis [Unknown]
